FAERS Safety Report 15791025 (Version 1)
Quarter: 2019Q1

REPORT INFORMATION
  Report Type: Spontaneous
  Country: US (occurrence: US)
  Receive Date: 20190104
  Receipt Date: 20190104
  Transmission Date: 20190417
  Serious: No
  Sender: FDA-Public Use
  Company Number: US-AMNEAL PHARMACEUTICALS-2018AMN01032

PATIENT

DRUGS (2)
  1. DICLOFENAC SODIUM. [Suspect]
     Active Substance: DICLOFENAC SODIUM
     Indication: ARTHRALGIA
     Dosage: 4 G, USE THIS GEL ONLY ONCE, ROUTE OF ADMINISTRATION WAS KNEE CAP AND LONG BONE THAT GOES BELOW KNEE
     Dates: start: 20181211, end: 20181211
  2. KLONOPIN [Concomitant]
     Active Substance: CLONAZEPAM
     Indication: PRODUCT USED FOR UNKNOWN INDICATION
     Dosage: UNK

REACTIONS (3)
  - Hypoaesthesia [Recovering/Resolving]
  - Drug ineffective [Unknown]
  - Muscle spasticity [Recovering/Resolving]

NARRATIVE: CASE EVENT DATE: 20131212
